FAERS Safety Report 23881574 (Version 1)
Quarter: 2024Q2

REPORT INFORMATION
  Report Type: Spontaneous
  Country: US (occurrence: US)
  Receive Date: 20240521
  Receipt Date: 20240521
  Transmission Date: 20240716
  Serious: No
  Sender: FDA-Public Use
  Company Number: US-SA-SAC20240513000768

PATIENT
  Sex: Female
  Weight: 61.2 kg

DRUGS (5)
  1. DUPIXENT [Suspect]
     Active Substance: DUPILUMAB
     Indication: Illness
     Dosage: 300 MG, QOW
     Route: 058
  2. TRIAMCINOLONE ACETONIDE [Concomitant]
     Active Substance: TRIAMCINOLONE ACETONIDE
  3. HYDROCORTISONE [Concomitant]
     Active Substance: HYDROCORTISONE
  4. MUPIROCIN [Concomitant]
     Active Substance: MUPIROCIN
  5. MUPIROCIN [Concomitant]
     Active Substance: MUPIROCIN

REACTIONS (2)
  - Pruritus [Unknown]
  - Skin erosion [Unknown]
